FAERS Safety Report 5152023-5 (Version None)
Quarter: 2006Q4

REPORT INFORMATION
  Report Type: 
  Country: None (occurrence: None)
  Receive Date: 20061116
  Receipt Date: 20061107
  Transmission Date: 20070319
  Serious: Yes (Hospitalization, Other)
  Sender: FDA-Public Use
  Company Number: US-BAYER-200614583BCC

PATIENT
  Age: 56 Year
  Sex: Male
  Weight: 84 kg

DRUGS (6)
  1. ALKA SELTZER PLUS EFFERVESCENT COLD [Suspect]
     Indication: HYPERSENSITIVITY
     Route: 048
  2. ALKA SELTZER PLUS EFFERVESCENT COLD [Suspect]
     Route: 048
     Dates: start: 20060301
  3. ASPIRIN [Suspect]
     Dates: start: 20060301
  4. LIPITOR [Concomitant]
  5. PLAVIX [Concomitant]
  6. LOPRESSOR [Concomitant]

REACTIONS (5)
  - CEREBROVASCULAR ACCIDENT [None]
  - CHEST PAIN [None]
  - HEADACHE [None]
  - MYOCARDIAL INFARCTION [None]
  - REFUSAL OF TREATMENT BY PATIENT [None]
